FAERS Safety Report 8461759-X (Version None)
Quarter: 2012Q2

REPORT INFORMATION
  Report Type: 
  Country: None (occurrence: None)
  Receive Date: 20120625
  Receipt Date: 20120612
  Transmission Date: 20120825
  Serious: Yes (Other)
  Sender: FDA-Public Use
  Company Number: JP-UCBSA-059754

PATIENT
  Age: 39 Year
  Sex: Male

DRUGS (2)
  1. KEPPRA [Suspect]
     Dosage: STRENGTH: 500 MG, TWICE DAILY
     Route: 048
  2. UNKNOWNDRUG [Concomitant]

REACTIONS (2)
  - RHABDOMYOLYSIS [None]
  - CEREBELLAR ATAXIA [None]
